FAERS Safety Report 8014578-2 (Version None)
Quarter: 2011Q4

REPORT INFORMATION
  Report Type: 
  Country: None (occurrence: None)
  Receive Date: 20111229
  Receipt Date: 20111226
  Transmission Date: 20120403
  Serious: Yes (Hospitalization, Other)
  Sender: FDA-Public Use
  Company Number: PHHY2011FR104758

PATIENT
  Sex: Female
  Weight: 73 kg

DRUGS (6)
  1. LEXOMIL [Concomitant]
     Dosage: 0.5 DF, QD
     Route: 048
  2. TASIGNA [Suspect]
     Indication: CHRONIC MYELOID LEUKAEMIA
     Dosage: 400 MG, BID
     Route: 048
     Dates: start: 20090416
  3. TASIGNA [Suspect]
     Route: 048
     Dates: end: 20090706
  4. ESOMEPRAZOLE SODIUM [Concomitant]
     Dosage: 20 MG, DAILY
  5. NEBIVOLOL HCL [Concomitant]
     Dosage: 1.25 MG PER DAY
  6. PREDNISOLONE [Concomitant]
     Dosage: 20 MG, DAILY

REACTIONS (3)
  - PLEURAL EFFUSION [None]
  - OEDEMA [None]
  - PERICARDIAL EFFUSION [None]
